FAERS Safety Report 9115760 (Version 1)
Quarter: 2013Q1

REPORT INFORMATION
  Report Type: Spontaneous
  Country: US (occurrence: None)
  Receive Date: 20130221
  Receipt Date: 20130221
  Transmission Date: 20140127
  Serious: Yes (Life-Threatening, Hospitalization, Disabling)
  Sender: FDA-Public Use
  Company Number: None

PATIENT
  Age: 53 Year
  Sex: Female

DRUGS (1)
  1. ZOLPIDEM [Suspect]

REACTIONS (4)
  - Product substitution issue [None]
  - Burns second degree [None]
  - Burns third degree [None]
  - Feeling abnormal [None]
